FAERS Safety Report 24730713 (Version 1)
Quarter: 2024Q4

REPORT INFORMATION
  Report Type: Spontaneous
  Country: JP (occurrence: JP)
  Receive Date: 20241213
  Receipt Date: 20241213
  Transmission Date: 20250115
  Serious: Yes (Hospitalization, Other)
  Sender: MYLAN
  Company Number: JP-MYE-2024M1111061AA

PATIENT
  Age: 3 Decade
  Sex: Male

DRUGS (11)
  1. PREDNISOLONE [Suspect]
     Active Substance: PREDNISOLONE
     Indication: Epstein-Barr virus associated lymphoma
     Dosage: 100 MG/BODY ON DAYS 1?5
     Route: 065
  2. CYCLOSPORINE [Suspect]
     Active Substance: CYCLOSPORINE
     Indication: Prophylaxis against graft versus host disease
     Route: 065
  3. ETOPOSIDE [Suspect]
     Active Substance: ETOPOSIDE
     Indication: Epstein-Barr virus associated lymphoma
     Dosage: 50 MG/BODY
     Route: 065
  4. VINCRISTINE [Suspect]
     Active Substance: VINCRISTINE
     Indication: Epstein-Barr virus associated lymphoma
     Dosage: 0.4 MG/BODY
     Route: 065
  5. DOXORUBICIN [Suspect]
     Active Substance: DOXORUBICIN
     Indication: Epstein-Barr virus associated lymphoma
     Dosage: 50 MG/BODY ON DAYS 1?4
     Route: 065
  6. CYCLOPHOSPHAMIDE [Suspect]
     Active Substance: CYCLOPHOSPHAMIDE
     Indication: Epstein-Barr virus associated lymphoma
     Dosage: 750 MG/BODY ON DAY 5
     Route: 065
  7. CYCLOPHOSPHAMIDE [Suspect]
     Active Substance: CYCLOPHOSPHAMIDE
     Indication: Bone marrow conditioning regimen
     Dosage: FOR TWO DAYS
     Route: 065
  8. METHOTREXATE [Suspect]
     Active Substance: METHOTREXATE
     Indication: Prophylaxis against graft versus host disease
     Route: 065
  9. ASPARAGINASE [Concomitant]
     Active Substance: ASPARAGINASE
     Indication: Epstein-Barr virus associated lymphoma
     Dosage: 5,000 U/BODY, 7 TIMES, EVERY OTHER DAY
     Route: 065
  10. MICAFUNGIN [Concomitant]
     Active Substance: MICAFUNGIN SODIUM
     Indication: Antifungal prophylaxis
     Route: 065
  11. LETERMOVIR [Concomitant]
     Active Substance: LETERMOVIR
     Indication: Antiviral prophylaxis
     Route: 065

REACTIONS (3)
  - Drug ineffective [Unknown]
  - Febrile neutropenia [Recovering/Resolving]
  - Gastrointestinal mucosal disorder [Recovering/Resolving]
